FAERS Safety Report 7615716 (Version 2)
Quarter: 2019Q2

REPORT INFORMATION
  Report Type: Spontaneous
  Country: ES (occurrence: ES)
  Receive Date: 20101004
  Receipt Date: 20190403
  Transmission Date: 20190711
  Serious: Yes (Hospitalization, Other)
  Sender: FDA-Public Use
  Company Number: ES-PFIZER INC-2010124095

PATIENT
  Age: 33 Year
  Sex: Female

DRUGS (2)
  1. CHAMPIX [Suspect]
     Active Substance: VARENICLINE TARTRATE
     Indication: SMOKING CESSATION THERAPY
     Dosage: 0.5 MG, 1X/DAY (FIRST 3 DAYS)
     Route: 048
  2. CHAMPIX [Suspect]
     Active Substance: VARENICLINE TARTRATE
     Indication: NICOTINE DEPENDENCE
     Dosage: 1 MG, 1X/DAY (9 FOLLOWING DAYS)
     Route: 048

REACTIONS (15)
  - Delirium [Recovered/Resolved]
  - Anxiety [Recovered/Resolved]
  - Feeling guilty [Recovered/Resolved]
  - Psychotic disorder [Recovered/Resolved]
  - Abnormal behaviour [Recovered/Resolved]
  - Speech disorder [Recovered/Resolved]
  - Insomnia [Unknown]
  - Thinking abnormal [Recovered/Resolved]
  - Headache [Unknown]
  - Delusion [Recovered/Resolved]
  - Thought insertion [Recovered/Resolved]
  - Restlessness [Recovered/Resolved]
  - Nausea [Unknown]
  - Hallucination, auditory [Recovered/Resolved]
  - Withdrawal syndrome [Recovered/Resolved]
